FAERS Safety Report 8136094-X (Version None)
Quarter: 2012Q1

REPORT INFORMATION
  Report Type: 
  Country: None (occurrence: None)
  Receive Date: 20120214
  Receipt Date: 20110815
  Transmission Date: 20120608
  Serious: No
  Sender: FDA-Public Use
  Company Number: US-TYCO HEALTHCARE/MALLINCKRODT-T201101395

PATIENT
  Sex: Female

DRUGS (7)
  1. FENTANYL [Concomitant]
     Dosage: 50 UG/HR, Q 72 HOURS
     Dates: end: 20110709
  2. ANTIHYPERTENSIVES [Concomitant]
     Dosage: UNK
  3. HYDROCODONE BITARTRATE AND ACETAMINOPHEN [Concomitant]
     Dosage: 10 MG, TOOK ONE
     Route: 048
     Dates: start: 20110709, end: 20110709
  4. CHOLESTEROL- AND TRIGLYCERIDE REDUCERS [Concomitant]
     Dosage: UNK
  5. HYDROCODONE BITARTRATE AND ACETAMINOPHEN [Concomitant]
     Indication: PAIN
     Dosage: 5/325 MG TABLET, BID
     Route: 048
  6. ALLERGY MEDICATION [Concomitant]
     Dosage: UNK
  7. FENTANYL-100 [Suspect]
     Indication: PAIN
     Dosage: 50 UG/HR, Q 72 HOURS
     Dates: start: 20110709

REACTIONS (3)
  - DRUG EFFECT DECREASED [None]
  - INAPPROPRIATE SCHEDULE OF DRUG ADMINISTRATION [None]
  - DRUG INEFFECTIVE [None]
